FAERS Safety Report 8792466 (Version 2)
Quarter: 2015Q2

REPORT INFORMATION
  Report Type: Report from Study
  Country: US (occurrence: US)
  Receive Date: 20120918
  Receipt Date: 20150618
  Transmission Date: 20150821
  Serious: Yes (Death)
  Sender: FDA-Public Use
  Company Number: US-ROCHE-1129345

PATIENT
  Sex: Female

DRUGS (2)
  1. AVASTIN [Suspect]
     Active Substance: BEVACIZUMAB
     Indication: BRAIN NEOPLASM MALIGNANT
  2. AVASTIN [Suspect]
     Active Substance: BEVACIZUMAB
     Indication: HEAD AND NECK CANCER
     Dosage: 25/JAN/2008, 22/FEB/2008, 07/MAR/2008, 20/MAR/2008
     Route: 042
     Dates: start: 20080111

REACTIONS (2)
  - Death [Fatal]
  - Off label use [Unknown]
